FAERS Safety Report 4862678-8 (Version None)
Quarter: 2005Q4

REPORT INFORMATION
  Report Type: 
  Country: None (occurrence: None)
  Receive Date: 20051221
  Receipt Date: 20051005
  Transmission Date: 20060501
  Serious: Yes (Death, Hospitalization)
  Sender: FDA-Public Use
  Company Number: US-MERCK-0510USA04378

PATIENT
  Age: 81 Year
  Sex: Female
  Weight: 84 kg

DRUGS (5)
  1. VIOXX [Suspect]
     Indication: ARTHRITIS
     Route: 048
     Dates: start: 20020130, end: 20040626
  2. XALATAN [Concomitant]
     Route: 047
  3. LISINOPRIL [Concomitant]
     Route: 065
  4. LISINOPRIL [Concomitant]
     Route: 065
  5. LEVOXYL [Concomitant]
     Route: 065

REACTIONS (3)
  - CHRONIC OBSTRUCTIVE PULMONARY DISEASE [None]
  - DEEP VEIN THROMBOSIS [None]
  - HYPERTENSIVE HEART DISEASE [None]
